FAERS Safety Report 6819829-5 (Version None)
Quarter: 2010Q3

REPORT INFORMATION
  Report Type: 
  Country: None (occurrence: None)
  Receive Date: 20100707
  Receipt Date: 20100623
  Transmission Date: 20110219
  Serious: Yes (Hospitalization)
  Sender: FDA-Public Use
  Company Number: NL-GENENTECH-303603

PATIENT
  Sex: Male
  Weight: 72 kg

DRUGS (1)
  1. RITUXIMAB [Suspect]
     Indication: DIFFUSE LARGE B-CELL LYMPHOMA
     Dosage: 700 U, UNK
     Route: 042
     Dates: start: 20091118

REACTIONS (1)
  - HAEMORRHAGE [None]
